FAERS Safety Report 6239836-3 (Version None)
Quarter: 2009Q2

REPORT INFORMATION
  Report Type: 
  Country: None (occurrence: None)
  Receive Date: 20090623
  Receipt Date: 20080805
  Transmission Date: 20091009
  Serious: Yes (Death, Hospitalization)
  Sender: FDA-Public Use
  Company Number: US-BIOGENIDEC-2007BI026363

PATIENT
  Age: 48 Year
  Sex: Female

DRUGS (1)
  1. TYSABRI [Suspect]
     Indication: MULTIPLE SCLEROSIS
     Route: 042
     Dates: start: 20070821, end: 20080107

REACTIONS (8)
  - CERVICAL MYELOPATHY [None]
  - DECUBITUS ULCER [None]
  - DEHYDRATION [None]
  - DEMYELINATION [None]
  - NECK PAIN [None]
  - PROGRESSIVE MULTIPLE SCLEROSIS [None]
  - URINARY TRACT INFECTION [None]
  - VOMITING [None]
